FAERS Safety Report 5694702-7 (Version None)
Quarter: 2008Q2

REPORT INFORMATION
  Report Type: 
  Country: None (occurrence: None)
  Receive Date: 20080404
  Receipt Date: 20080401
  Transmission Date: 20081010
  Serious: Yes (Death, Life-Threatening, Other)
  Sender: FDA-Public Use
  Company Number: B0508223A

PATIENT
  Age: 50 Year
  Sex: Female
  Weight: 37 kg

DRUGS (25)
  1. ALKERAN [Suspect]
     Indication: STEM CELL TRANSPLANT
     Dosage: 70MG PER DAY
     Route: 042
     Dates: start: 20070824, end: 20070826
  2. GRAN [Concomitant]
     Dates: start: 20070902, end: 20070908
  3. CYCLOSPORINE [Concomitant]
     Indication: IMMUNOSUPPRESSANT DRUG THERAPY
     Dosage: 110MG PER DAY
     Route: 042
     Dates: start: 20070828, end: 20070903
  4. CYCLOSPORINE [Concomitant]
     Dosage: 90MG PER DAY
     Route: 042
     Dates: start: 20070904, end: 20070906
  5. CYCLOSPORINE [Concomitant]
     Dosage: 70MG PER DAY
     Route: 042
     Dates: start: 20070907, end: 20070907
  6. CYCLOSPORINE [Concomitant]
     Dosage: 50MG PER DAY
     Route: 042
     Dates: start: 20070908, end: 20070910
  7. CYCLOSPORINE [Concomitant]
     Dosage: 40MG PER DAY
     Route: 042
     Dates: start: 20070911, end: 20070915
  8. CYCLOSPORINE [Concomitant]
     Dosage: 30MG PER DAY
     Route: 042
     Dates: start: 20070916, end: 20071001
  9. CYCLOSPORINE [Concomitant]
     Dosage: 60MG PER DAY
     Route: 048
     Dates: start: 20071002, end: 20071006
  10. NEO-MINOPHAGEN-C [Concomitant]
     Indication: DRUG USE FOR UNKNOWN INDICATION
     Dosage: 60ML PER DAY
     Route: 042
     Dates: start: 20070829, end: 20070911
  11. MAXIPIME [Concomitant]
     Indication: DRUG USE FOR UNKNOWN INDICATION
     Dosage: 4G PER DAY
     Route: 042
     Dates: start: 20070902, end: 20070904
  12. ALBUMIN (HUMAN) [Concomitant]
     Indication: DRUG USE FOR UNKNOWN INDICATION
     Dosage: 100ML PER DAY
     Dates: start: 20070902, end: 20070905
  13. MEROPEN [Concomitant]
     Indication: DRUG USE FOR UNKNOWN INDICATION
     Dosage: 2G PER DAY
     Route: 042
     Dates: start: 20070905, end: 20070909
  14. NEUART [Concomitant]
     Indication: DRUG USE FOR UNKNOWN INDICATION
     Dosage: 1.5IU3 PER DAY
     Route: 042
     Dates: start: 20070907, end: 20070908
  15. HEPARIN [Concomitant]
     Indication: DRUG USE FOR UNKNOWN INDICATION
     Dosage: 4IU3 PER DAY
     Dates: start: 20070829, end: 20070903
  16. ITRIZOLE [Concomitant]
     Indication: DRUG USE FOR UNKNOWN INDICATION
     Dosage: 200MG PER DAY
     Route: 048
     Dates: start: 20070823, end: 20070905
  17. CIPROFLOXACIN [Concomitant]
     Indication: DRUG USE FOR UNKNOWN INDICATION
     Dosage: 600MG PER DAY
     Route: 048
     Dates: start: 20070823, end: 20070901
  18. ZOVIRAX [Concomitant]
     Indication: DRUG USE FOR UNKNOWN INDICATION
     Dosage: 1000MG PER DAY
     Route: 048
     Dates: start: 20070823, end: 20071001
  19. URSO 250 [Concomitant]
     Indication: DRUG USE FOR UNKNOWN INDICATION
     Dosage: 600MG PER DAY
     Route: 048
     Dates: start: 20070823, end: 20070912
  20. PARIET [Concomitant]
     Indication: DRUG USE FOR UNKNOWN INDICATION
     Dosage: 10MG PER DAY
     Route: 048
     Dates: start: 20070830, end: 20070916
  21. GLYMACKEN [Concomitant]
     Indication: DRUG USE FOR UNKNOWN INDICATION
     Dosage: 600ML PER DAY
     Route: 042
     Dates: start: 20070916, end: 20071006
  22. DESMOPRESSIN ACETATE [Concomitant]
     Indication: DRUG USE FOR UNKNOWN INDICATION
     Dosage: 5MG PER DAY
     Route: 045
     Dates: start: 20071001, end: 20071006
  23. DIOVAN [Concomitant]
     Indication: DRUG USE FOR UNKNOWN INDICATION
     Dosage: 20MG PER DAY
     Route: 048
     Dates: start: 20070913, end: 20071006
  24. ANTIMYCOTIC [Concomitant]
     Indication: DRUG USE FOR UNKNOWN INDICATION
     Route: 042
     Dates: start: 20070905, end: 20070917
  25. IMMUNE GLOBULIN INTRAVENOUS (HUMAN) [Concomitant]
     Indication: DRUG USE FOR UNKNOWN INDICATION
     Route: 042
     Dates: start: 20070907, end: 20070911

REACTIONS (10)
  - CEREBRAL HAEMORRHAGE [None]
  - DEPRESSED LEVEL OF CONSCIOUSNESS [None]
  - DISSEMINATED INTRAVASCULAR COAGULATION [None]
  - ENTEROCOLITIS [None]
  - FACE OEDEMA [None]
  - FEBRILE NEUTROPENIA [None]
  - LOCALISED OEDEMA [None]
  - MOUTH ULCERATION [None]
  - PYREXIA [None]
  - SEPSIS [None]
